FAERS Safety Report 9893405 (Version 1)
Quarter: 2014Q1

REPORT INFORMATION
  Report Type: Spontaneous
  Country: US (occurrence: US)
  Receive Date: 20140213
  Receipt Date: 20140213
  Transmission Date: 20141002
  Serious: Yes (Other)
  Sender: FDA-Public Use
  Company Number: US-BAYER-2014-019113

PATIENT
  Age: 29 Year
  Sex: Female

DRUGS (1)
  1. YAZ [Suspect]
     Indication: MENOMETRORRHAGIA
     Dosage: UNK
     Route: 048
     Dates: start: 2009, end: 2010

REACTIONS (3)
  - Genital haemorrhage [None]
  - Thrombosis [None]
  - Abdominal pain upper [None]
